FAERS Safety Report 6551481-9 (Version None)
Quarter: 2010Q1

REPORT INFORMATION
  Report Type: 
  Country: None (occurrence: None)
  Receive Date: 20100126
  Receipt Date: 20100118
  Transmission Date: 20100710
  Serious: Yes (Other)
  Sender: FDA-Public Use
  Company Number: US-ALEXION-A200901132

PATIENT
  Sex: Male

DRUGS (7)
  1. SOLIRIS [Suspect]
     Indication: PAROXYSMAL NOCTURNAL HAEMOGLOBINURIA
     Dosage: 600 MG, QW X4W
     Route: 042
     Dates: start: 20090701
  2. SOLIRIS [Suspect]
     Dosage: 900 MG, Q2W
     Route: 042
     Dates: start: 20090729
  3. PREDNISONE TAB [Concomitant]
     Dosage: 5 MG, UNK
  4. PREDNISONE TAB [Concomitant]
     Dosage: 4 MG, UNK
     Dates: start: 20091217
  5. LISINOPRIL [Concomitant]
     Dosage: 5 MG, QD
     Route: 048
  6. AVODART [Concomitant]
     Indication: PROSTATIC DISORDER
     Dosage: UNK
     Route: 048
  7. HALOTESTIN [Concomitant]
     Dosage: UNK
     Route: 048
     Dates: end: 20091217

REACTIONS (6)
  - ABDOMINAL DISCOMFORT [None]
  - DIARRHOEA [None]
  - HAEMOGLOBIN DECREASED [None]
  - PYREXIA [None]
  - SQUAMOUS CELL CARCINOMA [None]
  - STRESS [None]
